FAERS Safety Report 8757984 (Version 1)
Quarter: 2012Q4

REPORT INFORMATION
  Report Type: 
  Country: US (occurrence: US)
  Receive Date: 20120828
  Receipt Date: 20120828
  Transmission Date: 20130627
  Serious: Yes (Other)
  Sender: FDA-Public Use
  Company Number: US-ELI_LILLY_AND_COMPANY-US201208007354

PATIENT
  Age: 59 Year
  Sex: Male

DRUGS (2)
  1. EFFIENT [Suspect]
     Indication: STENT PLACEMENT
     Dosage: 10 mg, unknown
     Route: 065
     Dates: start: 20120821
  2. PLAVIX [Concomitant]
     Dosage: UNK

REACTIONS (1)
  - Cerebrovascular accident [Unknown]
